FAERS Safety Report 5167748-5 (Version None)
Quarter: 2006Q4

REPORT INFORMATION
  Report Type: 
  Country: None (occurrence: None)
  Receive Date: 20061208
  Receipt Date: 20061201
  Transmission Date: 20070319
  Serious: Yes (Other)
  Sender: FDA-Public Use
  Company Number: US-JNJFOC-20061200899

PATIENT
  Sex: Female

DRUGS (18)
  1. INFLIXIMAB [Suspect]
     Indication: RHEUMATOID ARTHRITIS
     Route: 042
  2. ALBUTEROL [Concomitant]
     Dosage: DAILY
  3. ASPIRIN [Concomitant]
  4. DETROL [Concomitant]
  5. FOLIC ACID [Concomitant]
  6. FOSAMAX [Concomitant]
  7. ISOSORBIDE [Concomitant]
  8. METFORMIN [Concomitant]
  9. METHOTREXATE [Concomitant]
  10. METOCLOPRAMIDE [Concomitant]
  11. METOPROLOL SUCCINATE [Concomitant]
  12. VITAMIN CAP [Concomitant]
  13. PREDNISONE TAB [Concomitant]
  14. ACIPHEX [Concomitant]
     Dosage: DAILY
  15. PROTONIX [Concomitant]
  16. MIRALAX [Concomitant]
     Dosage: DAILY
  17. FLOVENT [Concomitant]
     Dosage: DAILY
  18. SINGULAIR [Concomitant]
     Dosage: DAILY

REACTIONS (1)
  - SKIN CANCER [None]
